FAERS Safety Report 24260039 (Version 1)
Quarter: 2024Q3

REPORT INFORMATION
  Report Type: Spontaneous
  Country: US (occurrence: None)
  Receive Date: 20240827
  Receipt Date: 20240827
  Transmission Date: 20241017
  Serious: Yes (Life-Threatening, Hospitalization)
  Sender: Public
  Company Number: None

PATIENT
  Age: 60 Year
  Sex: Female
  Weight: 74.1 kg

DRUGS (12)
  1. OZEMPIC [Suspect]
     Active Substance: SEMAGLUTIDE
     Indication: Weight control
     Dosage: OTHER FREQUENCY : ONCE WEEKLY;?
     Route: 058
  2. OZEMPIC [Suspect]
     Active Substance: SEMAGLUTIDE
     Indication: Diabetes mellitus
  3. ASPIRIN [Suspect]
     Active Substance: ASPIRIN
  4. EZETIMIBE [Suspect]
     Active Substance: EZETIMIBE
  5. FEXOFENADINE [Suspect]
     Active Substance: FEXOFENADINE HYDROCHLORIDE
  6. FLUTICASONE [Suspect]
     Active Substance: FLUTICASONE
  7. HYDROCHLOROTHIAZIDE [Suspect]
     Active Substance: HYDROCHLOROTHIAZIDE
  8. LISINOPRIL [Suspect]
     Active Substance: LISINOPRIL
  9. METFORMIN [Suspect]
     Active Substance: METFORMIN HYDROCHLORIDE
  10. METOPROLOL [Suspect]
     Active Substance: METOPROLOL
  11. ROSUVASTATIN [Suspect]
     Active Substance: ROSUVASTATIN\ROSUVASTATIN CALCIUM
  12. VENLAFAXINE [Suspect]
     Active Substance: VENLAFAXINE HYDROCHLORIDE

REACTIONS (15)
  - Syncope [None]
  - Nausea [None]
  - Pyrexia [None]
  - Chills [None]
  - Rhinorrhoea [None]
  - Malaise [None]
  - Mobility decreased [None]
  - Asthenia [None]
  - Fluid intake reduced [None]
  - Dehydration [None]
  - Hypovolaemic shock [None]
  - Colitis [None]
  - Acute kidney injury [None]
  - Dialysis [None]
  - Sepsis [None]

NARRATIVE: CASE EVENT DATE: 20240827
